FAERS Safety Report 7292342-X (Version None)
Quarter: 2011Q1

REPORT INFORMATION
  Report Type: 
  Country: None (occurrence: None)
  Receive Date: 20110210
  Receipt Date: 20110210
  Transmission Date: 20110831
  Serious: No
  Sender: FDA-Public Use
  Company Number: None

PATIENT
  Age: 62 Year
  Sex: Female
  Weight: 70.3075 kg

DRUGS (1)
  1. DILTIAZEM [Suspect]
     Indication: HYPERTENSION
     Dosage: 1 CAPSULE Q DAY PO
     Route: 048
     Dates: start: 20090601, end: 20100201

REACTIONS (3)
  - ARTHRALGIA [None]
  - RASH GENERALISED [None]
  - MYALGIA [None]
